FAERS Safety Report 20645689 (Version 1)
Quarter: 2022Q1

REPORT INFORMATION
  Report Type: Report from Study
  Country: DE (occurrence: DE)
  Receive Date: 20220328
  Receipt Date: 20220328
  Transmission Date: 20220424
  Serious: Yes (Hospitalization)
  Sender: FDA-Public Use
  Company Number: DE-SAMSUNG BIOEPIS-SB-2021-16598

PATIENT
  Age: 62 Year
  Sex: Female

DRUGS (13)
  1. ETANERCEPT [Suspect]
     Active Substance: ETANERCEPT
     Indication: Rheumatoid arthritis
     Dosage: 50 MILLIGRAM
     Route: 065
     Dates: start: 201403, end: 201509
  2. ETANERCEPT [Suspect]
     Active Substance: ETANERCEPT
     Dosage: 50 MILLIGRAM
     Route: 065
     Dates: start: 201606, end: 201611
  3. ETANERCEPT [Suspect]
     Active Substance: ETANERCEPT
     Dosage: 50 UNK
     Route: 065
     Dates: start: 201709, end: 201908
  4. ETANERCEPT [Suspect]
     Active Substance: ETANERCEPT
     Dosage: 50 UNK
     Route: 065
     Dates: start: 20201007, end: 20201124
  5. METHOTREXATE SODIUM [Suspect]
     Active Substance: METHOTREXATE SODIUM
     Indication: Rheumatoid arthritis
     Dosage: 20 MG WEEKLY
     Route: 065
  6. METHOTREXATE SODIUM [Suspect]
     Active Substance: METHOTREXATE SODIUM
     Dosage: 17.5 MG
     Route: 065
  7. METHOTREXATE SODIUM [Suspect]
     Active Substance: METHOTREXATE SODIUM
     Dosage: 15 MG
     Route: 065
  8. ORENCIA [Suspect]
     Active Substance: ABATACEPT
     Indication: Rheumatoid arthritis
     Dosage: 125 MG
     Route: 065
     Dates: start: 201910, end: 202003
  9. ORENCIA [Suspect]
     Active Substance: ABATACEPT
     Dosage: 125 MG WEEKLY
     Route: 065
     Dates: end: 20200316
  10. HYDROXYCHLOROQUINE SULFATE [Concomitant]
     Active Substance: HYDROXYCHLOROQUINE SULFATE
     Indication: Rheumatoid arthritis
     Dosage: 300 MG
  11. HYDROXYCHLOROQUINE SULFATE [Concomitant]
     Active Substance: HYDROXYCHLOROQUINE SULFATE
     Dosage: 200 MG
  12. HYDROXYCHLOROQUINE SULFATE [Concomitant]
     Active Substance: HYDROXYCHLOROQUINE SULFATE
     Dosage: UNK
  13. ACTEMRA [Suspect]
     Active Substance: TOCILIZUMAB
     Indication: Rheumatoid arthritis
     Dosage: 162 MG
     Route: 058
     Dates: start: 201510, end: 201602

REACTIONS (2)
  - Oral mucosa erosion [Unknown]
  - Invasive breast carcinoma [Not Recovered/Not Resolved]

NARRATIVE: CASE EVENT DATE: 20201101
